FAERS Safety Report 24945549 (Version 2)
Quarter: 2025Q1

REPORT INFORMATION
  Report Type: Spontaneous
  Country: US (occurrence: US)
  Receive Date: 20250209
  Receipt Date: 20250222
  Transmission Date: 20250409
  Serious: No
  Sender: SANOFI AVENTIS
  Company Number: US-SA-2025SA038363

PATIENT
  Age: 73 Year
  Sex: Female
  Weight: 66.67 kg

DRUGS (9)
  1. DUPIXENT [Suspect]
     Active Substance: DUPILUMAB
     Indication: Dermatitis atopic
     Dosage: 300 MG, QOW
     Route: 058
  2. ACETAMINOPHEN\HYDROCODONE [Concomitant]
     Active Substance: ACETAMINOPHEN\HYDROCODONE
  3. MOMETASONE FUROATE [Concomitant]
     Active Substance: MOMETASONE FUROATE
  4. MICARDIS [Concomitant]
     Active Substance: TELMISARTAN
  5. DILTIAZEM [Concomitant]
     Active Substance: DILTIAZEM
  6. ATORVASTATIN CALCIUM [Concomitant]
     Active Substance: ATORVASTATIN CALCIUM
  7. CLOPIDOGREL [Concomitant]
     Active Substance: CLOPIDOGREL BISULFATE
  8. ESCITALOPRAM OXALATE [Concomitant]
     Active Substance: ESCITALOPRAM OXALATE
  9. BUPROPION [Concomitant]
     Active Substance: BUPROPION

REACTIONS (5)
  - Pruritus [Unknown]
  - Skin swelling [Unknown]
  - Exposure to radiation [Unknown]
  - Rash [Unknown]
  - Product dose omission issue [Unknown]
